FAERS Safety Report 13452243 (Version 1)
Quarter: 2017Q2

REPORT INFORMATION
  Report Type: Report from Study
  Country: US (occurrence: BR)
  Receive Date: 20170418
  Receipt Date: 20170418
  Transmission Date: 20170830
  Serious: Yes (Hospitalization, Other)
  Sender: FDA-Public Use
  Company Number: US-SUNOVION-2017SUN001620

PATIENT
  Sex: Female
  Weight: 47 kg

DRUGS (1)
  1. INDACATEROL AND GLYCOPYRROLATE [Suspect]
     Active Substance: GLYCOPYRROLATE\INDACATEROL MALEATE
     Indication: PNEUMONIA
     Dosage: 1 DF, UNK (50/110UG)
     Route: 055

REACTIONS (6)
  - Influenza [Unknown]
  - Pulmonary congestion [Unknown]
  - Bacterial infection [Unknown]
  - Sensitivity to weather change [Unknown]
  - Off label use [Unknown]
  - Immunodeficiency [Unknown]
